FAERS Safety Report 5032217-X (Version None)
Quarter: 2006Q2

REPORT INFORMATION
  Report Type: 
  Country: None (occurrence: None)
  Receive Date: 20060619
  Receipt Date: 20060606
  Transmission Date: 20061013
  Serious: Yes (Other)
  Sender: FDA-Public Use
  Company Number: HQWYE032608JUN06

PATIENT
  Age: 4 Year
  Sex: Male

DRUGS (2)
  1. ZOSYN [Suspect]
     Indication: BACTERIAL INFECTION
     Dosage: 750 MG 1X PER 8 HR
  2. VANCOMYCIN [Concomitant]

REACTIONS (5)
  - DISEASE PROGRESSION [None]
  - KLEBSIELLA INFECTION [None]
  - MULTI-ORGAN FAILURE [None]
  - RESPIRATORY DISORDER [None]
  - SEPSIS [None]
